FAERS Safety Report 7703031-9 (Version None)
Quarter: 2011Q3

REPORT INFORMATION
  Report Type: 
  Country: None (occurrence: None)
  Receive Date: 20110823
  Receipt Date: 20110816
  Transmission Date: 20111222
  Serious: Yes (Other)
  Sender: FDA-Public Use
  Company Number: US-B.I. PHARMACEUTICALS,INC./RIDGEFIELD-2011-BP-20360PF

PATIENT
  Sex: Male
  Weight: 135.15 kg

DRUGS (13)
  1. LASIX [Concomitant]
  2. SINGULAIR [Concomitant]
  3. SPIRIVA [Suspect]
     Route: 055
  4. ADVAIR HFA [Concomitant]
  5. ALBUTEROL [Concomitant]
  6. COLCHICINE [Concomitant]
  7. NAPROXEN [Concomitant]
  8. QUINAPRIL HCL [Concomitant]
  9. PRAVASTATIN [Concomitant]
  10. WELLBUTRIN SR [Concomitant]
  11. LEXAPRO [Concomitant]
  12. QUINAPRIL HCL [Suspect]
     Dosage: 40 MG
     Route: 065
  13. ALLOPURINOL [Concomitant]

REACTIONS (2)
  - CARDIAC FAILURE CONGESTIVE [None]
  - RENAL FAILURE CHRONIC [None]
